FAERS Safety Report 8578714-1 (Version None)
Quarter: 2012Q3

REPORT INFORMATION
  Report Type: 
  Country: None (occurrence: None)
  Receive Date: 20120808
  Receipt Date: 20120802
  Transmission Date: 20120928
  Serious: Yes (Hospitalization)
  Sender: FDA-Public Use
  Company Number: FR-SANOFI-AVENTIS-2012SA049933

PATIENT
  Age: 43 Year
  Sex: Female
  Weight: 83 kg

DRUGS (20)
  1. RABEPRAZOLE SODIUM [Suspect]
     Route: 048
  2. ATORVASTATIN [Suspect]
     Route: 048
     Dates: end: 20120118
  3. LEPTICUR [Concomitant]
     Dates: end: 20111118
  4. ACAMPROSATE CALCIUM [Concomitant]
  5. ALFUZOSIN HYDROCHLORIDE [Suspect]
     Route: 048
  6. VALIUM [Concomitant]
     Dates: end: 20111118
  7. VENTOLIN [Concomitant]
  8. TERCIAN [Suspect]
     Route: 048
     Dates: end: 20111118
  9. PAROXETINE [Suspect]
     Route: 065
     Dates: end: 20111118
  10. SULFARLEM [Concomitant]
     Dates: end: 20111118
  11. LYRICA [Concomitant]
  12. CORDARONE [Suspect]
     Indication: ATRIAL FIBRILLATION
     Route: 048
     Dates: end: 20120125
  13. GLUCOPHAGE [Suspect]
     Route: 048
  14. EUPRESSYL [Suspect]
     Route: 048
  15. SERETIDE [Concomitant]
  16. THERALENE [Concomitant]
     Dates: end: 20111118
  17. ZOLPIDEM TARTRATE [Suspect]
     Route: 048
     Dates: end: 20111118
  18. QUETIAPINE [Suspect]
     Route: 048
     Dates: end: 20120129
  19. LITHIUM CARBONATE [Concomitant]
     Dates: end: 20111118
  20. DEPAMIDE [Suspect]
     Route: 048
     Dates: end: 20111118

REACTIONS (2)
  - CYTOLYTIC HEPATITIS [None]
  - CHOLESTASIS [None]
